FAERS Safety Report 16902728 (Version 5)
Quarter: 2020Q1

REPORT INFORMATION
  Report Type: Spontaneous
  Country: FR (occurrence: FR)
  Receive Date: 20191010
  Receipt Date: 20200207
  Transmission Date: 20200409
  Serious: Yes (Other)
  Sender: FDA-Public Use
  Company Number: FR-AUROBINDO-AUR-APL-2019-065601

PATIENT
  Age: 70 Year
  Sex: Female

DRUGS (17)
  1. ACETYLCYSTEINE. [Suspect]
     Active Substance: ACETYLCYSTEINE
     Dosage: 200 MILLIGRAM, ONCE A DAY
     Route: 048
     Dates: start: 20180305, end: 20180309
  2. OXOMEMAZINE [Suspect]
     Active Substance: OXOMEMAZINE
     Dosage: 1 GRAM, ONCE A DAY
     Route: 048
     Dates: start: 20180305, end: 20180310
  3. ACETAMINOPHEN. [Suspect]
     Active Substance: ACETAMINOPHEN
     Indication: BRONCHITIS
     Dosage: 3 GRAM, ONCE A DAY
     Route: 048
     Dates: start: 20180305, end: 20180310
  4. SERESTA [Concomitant]
     Active Substance: OXAZEPAM
     Indication: PRODUCT USED FOR UNKNOWN INDICATION
     Dosage: UNK
     Route: 065
  5. PARACETAMOL [Suspect]
     Active Substance: ACETAMINOPHEN
     Indication: BRONCHITIS
     Dosage: 3 GRAM, ONCE A DAY
     Route: 048
     Dates: start: 20180305, end: 20180310
  6. AMOXICILLIN. [Suspect]
     Active Substance: AMOXICILLIN
     Indication: BRONCHITIS
     Dosage: 3 GRAM, ONCE A DAY
     Route: 048
     Dates: start: 20180305, end: 20180310
  7. AMOXICILLIN. [Suspect]
     Active Substance: AMOXICILLIN
     Dosage: 1 GRAM, ONCE A DAY
     Route: 048
     Dates: start: 20180305, end: 20180310
  8. ACETAMINOPHEN. [Suspect]
     Active Substance: ACETAMINOPHEN
     Dosage: 3 GRAM, ONCE A DAY
     Route: 048
     Dates: start: 20180305, end: 20180310
  9. LEVOTHYROX [Concomitant]
     Active Substance: LEVOTHYROXINE
     Indication: PRODUCT USED FOR UNKNOWN INDICATION
     Dosage: UNK
     Route: 065
  10. ACETYLCYSTEINE. [Suspect]
     Active Substance: ACETYLCYSTEINE
     Dosage: 40 MILLIGRAM, ONCE A DAY
     Route: 048
     Dates: start: 20180305, end: 20180309
  11. MOMETASONE NASAL SPRAY SUSPENSION [Suspect]
     Active Substance: MOMETASONE FUROATE
     Indication: PRODUCT USED FOR UNKNOWN INDICATION
     Dosage: 100 MICROGRAM, ONCE A DAY
     Route: 048
     Dates: start: 20180305
  12. MOMETASONE NASAL SPRAY SUSPENSION [Suspect]
     Active Substance: MOMETASONE FUROATE
     Dosage: 50 MICROGRAM, ONCE A DAY
     Route: 048
     Dates: start: 20180305
  13. PARACETAMOL [Suspect]
     Active Substance: ACETAMINOPHEN
     Dosage: 1 GRAM, ONCE A DAY
     Route: 048
     Dates: start: 20180305, end: 20180310
  14. PREDNISONE. [Suspect]
     Active Substance: PREDNISONE
     Dosage: 1 GRAM, ONCE A DAY
     Route: 048
     Dates: start: 20180305, end: 20180310
  15. ACETYLCYSTEINE. [Suspect]
     Active Substance: ACETYLCYSTEINE
     Indication: BRONCHITIS
     Dosage: 400 MILLIGRAM, ONCE A DAY
     Route: 048
     Dates: start: 20180305, end: 20180309
  16. OXOMEMAZINE [Suspect]
     Active Substance: OXOMEMAZINE
     Indication: BRONCHITIS
     Dosage: 160 MILLIGRAM, ONCE A DAY
     Route: 048
     Dates: start: 20180305, end: 20180310
  17. PREDNISONE. [Suspect]
     Active Substance: PREDNISONE
     Indication: BRONCHITIS
     Dosage: 40 MILLIGRAM, ONCE A DAY
     Route: 048
     Dates: start: 20180305, end: 20180307

REACTIONS (4)
  - Pruritus [Recovered/Resolved]
  - Rash [Recovered/Resolved]
  - Rash maculo-papular [Recovered/Resolved]
  - Skin burning sensation [Recovered/Resolved]

NARRATIVE: CASE EVENT DATE: 20190309
